FAERS Safety Report 5256852-9 (Version None)
Quarter: 2007Q1

REPORT INFORMATION
  Report Type: 
  Country: None (occurrence: None)
  Receive Date: 20070306
  Receipt Date: 20070222
  Transmission Date: 20070707
  Serious: Yes (Hospitalization)
  Sender: FDA-Public Use
  Company Number: US-ELI_LILLY_AND_COMPANY-US200702004896

PATIENT
  Age: 77 Year
  Sex: Female

DRUGS (1)
  1. FORTEO [Suspect]
     Indication: OSTEOPOROSIS
     Dates: start: 20060522

REACTIONS (9)
  - ASTHENIA [None]
  - BACK INJURY [None]
  - BLISTER [None]
  - CELLULITIS [None]
  - CONTUSION [None]
  - ERYTHEMA [None]
  - SKIN WARM [None]
  - STAPHYLOCOCCAL SKIN INFECTION [None]
  - STREPTOCOCCAL INFECTION [None]
